FAERS Safety Report 8609686-9 (Version None)
Quarter: 2012Q3

REPORT INFORMATION
  Report Type: 
  Country: None (occurrence: None)
  Receive Date: 20120821
  Receipt Date: 20120813
  Transmission Date: 20120928
  Serious: Yes (Death, Hospitalization)
  Sender: FDA-Public Use
  Company Number: JP-PFIZER INC-2012203411

PATIENT
  Age: 70 Year
  Sex: Male

DRUGS (8)
  1. LANSOPRAZOLE [Suspect]
     Indication: GASTROOESOPHAGEAL REFLUX DISEASE
     Dosage: 15 MG, 1X/DAY
     Route: 048
     Dates: start: 20100126, end: 20120717
  2. AMLODIPINE [Suspect]
     Indication: HYPERTENSION
     Dosage: UNK
     Route: 048
     Dates: start: 20091001, end: 20120711
  3. FLURBIPROFEN [Concomitant]
     Dosage: AS REQUIRED
     Dates: start: 20120714, end: 20120716
  4. FLURBIPROFEN [Concomitant]
     Dosage: 3 IN 1 D
     Dates: start: 20120717
  5. BIO THREE [Suspect]
     Indication: FUNCTIONAL GASTROINTESTINAL DISORDER
     Dosage: 3 SACHET (1 SACHET, 3 IN 1 D)
     Route: 048
     Dates: start: 20120619
  6. KN NO.3 [Concomitant]
     Dosage: 500 ML, L D
  7. TPN ELECTROLYTES IN PLASTIC CONTAINER [Concomitant]
     Dosage: 500 ML , 1 D
  8. PREDONINE [Concomitant]
     Dosage: UNK
     Route: 048

REACTIONS (2)
  - GENERAL PHYSICAL HEALTH DETERIORATION [None]
  - DIARRHOEA [None]
